FAERS Safety Report 6193848-7 (Version None)
Quarter: 2009Q2

REPORT INFORMATION
  Report Type: 
  Country: None (occurrence: None)
  Receive Date: 20090514
  Receipt Date: 20090501
  Transmission Date: 20091009
  Serious: Yes (Hospitalization, Other)
  Sender: FDA-Public Use
  Company Number: JPI-P-003674

PATIENT
  Age: 42 Year
  Sex: Female
  Weight: 52.1637 kg

DRUGS (9)
  1. XYREM [Suspect]
     Indication: CATAPLEXY
     Dosage: (2.25 GM,D),ORAL; 6 GM (3 GM,2 IN 1 D),ORAL;  7 GM (3.5 GM,2 IN 1 D),ORAL
     Route: 048
     Dates: start: 20080101
  2. XYREM [Suspect]
     Indication: NARCOLEPSY
     Dosage: (2.25 GM,D),ORAL; 6 GM (3 GM,2 IN 1 D),ORAL;  7 GM (3.5 GM,2 IN 1 D),ORAL
     Route: 048
     Dates: start: 20080101
  3. XYREM [Suspect]
     Indication: CATAPLEXY
     Dosage: (2.25 GM,D),ORAL; 6 GM (3 GM,2 IN 1 D),ORAL;  7 GM (3.5 GM,2 IN 1 D),ORAL
     Route: 048
     Dates: start: 20080307
  4. XYREM [Suspect]
     Indication: NARCOLEPSY
     Dosage: (2.25 GM,D),ORAL; 6 GM (3 GM,2 IN 1 D),ORAL;  7 GM (3.5 GM,2 IN 1 D),ORAL
     Route: 048
     Dates: start: 20080307
  5. XYREM [Suspect]
     Indication: CATAPLEXY
     Dosage: (2.25 GM,D),ORAL; 6 GM (3 GM,2 IN 1 D),ORAL;  7 GM (3.5 GM,2 IN 1 D),ORAL
     Route: 048
     Dates: start: 20090120
  6. XYREM [Suspect]
     Indication: NARCOLEPSY
     Dosage: (2.25 GM,D),ORAL; 6 GM (3 GM,2 IN 1 D),ORAL;  7 GM (3.5 GM,2 IN 1 D),ORAL
     Route: 048
     Dates: start: 20090120
  7. MODAFINIL [Suspect]
     Indication: DRUG USE FOR UNKNOWN INDICATION
  8. FLUTICASONE W/SALMETEROL [Concomitant]
  9. ALBUTEROL(INHALANT) [Concomitant]

REACTIONS (12)
  - AUTOIMMUNE THYROIDITIS [None]
  - CHONDRITIS [None]
  - DYSPHAGIA [None]
  - GASTRITIS [None]
  - GASTROOESOPHAGEAL REFLUX DISEASE [None]
  - GOITRE [None]
  - HIATUS HERNIA [None]
  - HYPOTHYROIDISM [None]
  - INFLUENZA LIKE ILLNESS [None]
  - LYMPHADENOPATHY [None]
  - NIGHT SWEATS [None]
  - WEIGHT DECREASED [None]
